FAERS Safety Report 9964650 (Version 1)
Quarter: 2014Q1

REPORT INFORMATION
  Report Type: Spontaneous
  Country: US (occurrence: US)
  Receive Date: 20140305
  Receipt Date: 20140305
  Transmission Date: 20141002
  Serious: No
  Sender: FDA-Public Use
  Company Number: US-AMGEN-USASP2013086960

PATIENT
  Age: 53 Year
  Sex: Female

DRUGS (1)
  1. ENBREL [Suspect]
     Indication: PSORIATIC ARTHROPATHY
     Dosage: 60 MG, QWK
     Route: 065
     Dates: start: 20130322, end: 201311

REACTIONS (3)
  - Arthropathy [Recovered/Resolved]
  - Flushing [Recovered/Resolved]
  - Injection site swelling [Recovered/Resolved]
